FAERS Safety Report 4582462-2 (Version None)
Quarter: 2005Q1

REPORT INFORMATION
  Report Type: 
  Country: None (occurrence: None)
  Receive Date: 20050215
  Receipt Date: 20040722
  Transmission Date: 20050727
  Serious: Yes (Hospitalization)
  Sender: FDA-Public Use
  Company Number: DE-ABBOTT-04P-062-0267901-00

PATIENT
  Sex: Female
  Weight: 57 kg

DRUGS (5)
  1. HUMIRA [Suspect]
     Indication: RHEUMATOID ARTHRITIS
     Route: 058
     Dates: start: 20031027, end: 20040501
  2. HUMIRA [Suspect]
     Route: 058
     Dates: start: 20040701
  3. CELECOXIB [Concomitant]
     Indication: RHEUMATOID ARTHRITIS
  4. OMEPRAZOLE MAGNESIUM [Concomitant]
     Indication: PROPHYLAXIS AGAINST GASTROINTESTINAL ULCER
     Route: 048
     Dates: start: 20040304, end: 20040606
  5. METAMIZOLE SODIUM [Concomitant]
     Indication: RHEUMATOID ARTHRITIS
     Route: 048
     Dates: start: 20031027

REACTIONS (6)
  - ARTHRALGIA [None]
  - ARTHRITIS INFECTIVE [None]
  - INJECTION SITE REACTION [None]
  - JOINT SWELLING [None]
  - LACERATION [None]
  - MENISCUS LESION [None]
